FAERS Safety Report 15409599 (Version 1)
Quarter: 2018Q3

REPORT INFORMATION
  Report Type: Spontaneous
  Country: US (occurrence: US)
  Receive Date: 20180920
  Receipt Date: 20180920
  Transmission Date: 20181010
  Serious: No
  Sender: FDA-Public Use
  Company Number: US-GLAXOSMITHKLINE-US2018170129

PATIENT
  Sex: Female

DRUGS (1)
  1. NUCALA [Suspect]
     Active Substance: MEPOLIZUMAB
     Indication: WHEEZING
     Dosage: 100 MG, CYC
     Route: 058
     Dates: start: 201806

REACTIONS (4)
  - Nasopharyngitis [Recovered/Resolved]
  - Inappropriate schedule of drug administration [Unknown]
  - Back pain [Recovered/Resolved]
  - Drug effect decreased [Not Recovered/Not Resolved]
